FAERS Safety Report 4529947-2 (Version None)
Quarter: 2004Q4

REPORT INFORMATION
  Report Type: 
  Country: None (occurrence: None)
  Receive Date: 20041214
  Receipt Date: 20041201
  Transmission Date: 20050328
  Serious: Yes (Other)
  Sender: FDA-Public Use
  Company Number: 2004101807

PATIENT
  Age: 61 Year
  Sex: Female

DRUGS (2)
  1. CELEBREX [Suspect]
     Indication: PAIN
     Dosage: (1 IN 1 D),
     Dates: start: 20010101, end: 20010601
  2. VITAMINS (VITAMINS) [Concomitant]

REACTIONS (5)
  - ARTHRALGIA [None]
  - DRUG INEFFECTIVE [None]
  - FALL [None]
  - HYPERSENSITIVITY [None]
  - TRANSIENT ISCHAEMIC ATTACK [None]
